FAERS Safety Report 8255430-7 (Version None)
Quarter: 2012Q1

REPORT INFORMATION
  Report Type: 
  Country: None (occurrence: None)
  Receive Date: 20120322
  Receipt Date: 20111122
  Transmission Date: 20120608
  Serious: Yes (Hospitalization)
  Sender: FDA-Public Use
  Company Number: UTC-012730

PATIENT
  Age: 45 Year
  Sex: Female
  Weight: 96.6 kg

DRUGS (4)
  1. TYVASO [Suspect]
     Indication: PULMONARY HYPERTENSION
     Dosage: 18-54 MICROGRAMS (4 IN 1 D) INHALATION
     Route: 055
     Dates: start: 20110818
  2. REVATIO [Concomitant]
  3. TRACLEER [Concomitant]
  4. DIURETICS (DIURETICS) [Concomitant]

REACTIONS (2)
  - OEDEMA [None]
  - HEART RATE IRREGULAR [None]
